FAERS Safety Report 24896998 (Version 3)
Quarter: 2025Q2

REPORT INFORMATION
  Report Type: Report from Study
  Country: GB (occurrence: GB)
  Receive Date: 20250128
  Receipt Date: 20250505
  Transmission Date: 20250717
  Serious: Yes (Other)
  Sender: ABBVIE
  Company Number: GB-ABBVIE-6104157

PATIENT
  Age: 43 Year
  Sex: Male

DRUGS (1)
  1. SKYRIZI [Suspect]
     Active Substance: RISANKIZUMAB-RZAA
     Indication: Crohn^s disease
     Dosage: 360MG/2.4ML
     Route: 058
     Dates: end: 202411

REACTIONS (1)
  - Surgery [Not Recovered/Not Resolved]
